FAERS Safety Report 8908589 (Version 2)
Quarter: 2013Q1

REPORT INFORMATION
  Report Type: Spontaneous
  Country: US (occurrence: US)
  Receive Date: 20121114
  Receipt Date: 20130102
  Transmission Date: 20140127
  Serious: Yes (Other)
  Sender: FDA-Public Use
  Company Number: US-PFIZER INC-2012284414

PATIENT
  Age: 26 Year
  Sex: Male

DRUGS (1)
  1. DILANTIN-125 [Suspect]
     Indication: EPILEPSY
     Dosage: 100 MG, DAILY (AT BED TIME)
     Dates: end: 2012

REACTIONS (2)
  - Convulsion [Unknown]
  - Tongue biting [Unknown]
